FAERS Safety Report 18430807 (Version 1)
Quarter: 2020Q4

REPORT INFORMATION
  Report Type: Spontaneous
  Country: US (occurrence: US)
  Receive Date: 20201026
  Receipt Date: 20201026
  Transmission Date: 20210114
  Serious: No
  Sender: FDA-Public Use
  Company Number: None

PATIENT
  Age: 83 Year
  Sex: Female
  Weight: 52.2 kg

DRUGS (10)
  1. VITAMIN B12 [Concomitant]
     Active Substance: CYANOCOBALAMIN
  2. ZOMETA [Concomitant]
     Active Substance: ZOLEDRONIC ACID
  3. VITAMIN D3 [Concomitant]
     Active Substance: CHOLECALCIFEROL
  4. MEDROL [Concomitant]
     Active Substance: METHYLPREDNISOLONE
  5. RITUXAN [Concomitant]
     Active Substance: RITUXIMAB
  6. SANCUSO [Concomitant]
     Active Substance: GRANISETRON
  7. ZOFRAN [Concomitant]
     Active Substance: ONDANSETRON HYDROCHLORIDE
  8. LEUKERAN [Suspect]
     Active Substance: CHLORAMBUCIL
     Indication: B-CELL LYMPHOMA
     Route: 048
     Dates: start: 20200806
  9. TYLENOL [Concomitant]
     Active Substance: ACETAMINOPHEN
  10. PREDNISONE. [Concomitant]
     Active Substance: PREDNISONE

REACTIONS (1)
  - Platelet count decreased [None]

NARRATIVE: CASE EVENT DATE: 20200907
